FAERS Safety Report 9657196 (Version 5)
Quarter: 2013Q4

REPORT INFORMATION
  Report Type: Report from Study
  Country: US (occurrence: US)
  Receive Date: 20131030
  Receipt Date: 20131227
  Transmission Date: 20140711
  Serious: Yes (Disabling, Other)
  Sender: FDA-Public Use
  Company Number: US-SANOFI-AVENTIS-2013SA078275

PATIENT
  Age: 58 Year
  Sex: Male

DRUGS (7)
  1. AUBAGIO [Suspect]
     Indication: MULTIPLE SCLEROSIS
     Route: 048
     Dates: start: 20130719, end: 20131129
  2. AMPYRA [Concomitant]
     Indication: MULTIPLE SCLEROSIS
     Route: 065
     Dates: start: 2008
  3. PLAVIX [Concomitant]
     Indication: STENT PLACEMENT
     Route: 065
     Dates: start: 200604
  4. CARVEDILOL [Concomitant]
     Indication: CARDIAC DISORDER
     Route: 065
     Dates: start: 200604
  5. PRAVASTATIN [Concomitant]
     Indication: BLOOD CHOLESTEROL
     Route: 065
     Dates: start: 201307
  6. ASPIRIN [Concomitant]
     Indication: CARDIAC DISORDER
     Route: 065
     Dates: start: 200604
  7. CIPRO [Concomitant]
     Indication: INFECTION
     Route: 065
     Dates: start: 20131015, end: 20131022

REACTIONS (3)
  - Nephrolithiasis [Recovered/Resolved]
  - Frequent bowel movements [Not Recovered/Not Resolved]
  - Flatulence [Not Recovered/Not Resolved]
